FAERS Safety Report 15244621 (Version 2)
Quarter: 2019Q3

REPORT INFORMATION
  Report Type: Spontaneous
  Country: DK (occurrence: DK)
  Receive Date: 20180806
  Receipt Date: 20190715
  Transmission Date: 20191004
  Serious: Yes (Disabling, Other)
  Sender: FDA-Public Use
  Company Number: DK-GLAXOSMITHKLINE-DK2018GSK140256

PATIENT
  Age: 60 Year
  Sex: Male

DRUGS (1)
  1. NEOTIGASON [Suspect]
     Active Substance: ACITRETIN
     Indication: ECZEMA
     Dosage: 25 MG, 1D, (DOSE: VARYING)
     Route: 048
     Dates: start: 20170520, end: 20180424

REACTIONS (7)
  - Polyneuropathy [Recovering/Resolving]
  - Peripheral coldness [Unknown]
  - Atrial fibrillation [Unknown]
  - Sensory disturbance [Not Recovered/Not Resolved]
  - Neuralgia [Not Recovered/Not Resolved]
  - Headache [Recovering/Resolving]
  - Fine motor skill dysfunction [Not Recovered/Not Resolved]

NARRATIVE: CASE EVENT DATE: 2017
